FAERS Safety Report 14503038 (Version 2)
Quarter: 2018Q2

REPORT INFORMATION
  Report Type: Spontaneous
  Country: US (occurrence: US)
  Receive Date: 20180208
  Receipt Date: 20180404
  Transmission Date: 20180711
  Serious: No
  Sender: FDA-Public Use
  Company Number: US-PFIZER INC-2018053858

PATIENT
  Age: 17 Year
  Sex: Female
  Weight: 51 kg

DRUGS (1)
  1. SOLU-MEDROL [Suspect]
     Active Substance: METHYLPREDNISOLONE SODIUM SUCCINATE
     Indication: LIP SWELLING
     Dosage: UNK
     Route: 042

REACTIONS (1)
  - Drug ineffective [Unknown]
